FAERS Safety Report 7087207-2 (Version None)
Quarter: 2010Q4

REPORT INFORMATION
  Report Type: 
  Country: None (occurrence: None)
  Receive Date: 20101106
  Receipt Date: 20101103
  Transmission Date: 20110411
  Serious: No
  Sender: FDA-Public Use
  Company Number: US-WYE-H18527710

PATIENT
  Sex: Female

DRUGS (5)
  1. PRISTIQ [Suspect]
     Indication: DEPRESSION
     Route: 048
     Dates: start: 20080101
  2. PRISTIQ [Suspect]
     Indication: POSTPARTUM DEPRESSION
     Dosage: TAPERED OFF MEDICATION
     Route: 048
  3. PRISTIQ [Suspect]
     Route: 065
     Dates: start: 20100101, end: 20100901
  4. PRISTIQ [Suspect]
     Dosage: TAPERED DOSE
     Route: 065
     Dates: start: 20100901, end: 20100101
  5. PRISTIQ [Suspect]
     Route: 048
     Dates: start: 20100101, end: 20101102

REACTIONS (8)
  - CONDITION AGGRAVATED [None]
  - DEPRESSION [None]
  - DISSOCIATION [None]
  - DRUG WITHDRAWAL SYNDROME [None]
  - HEADACHE [None]
  - IRRITABILITY [None]
  - UNEVALUABLE EVENT [None]
  - VISION BLURRED [None]
